FAERS Safety Report 7830819-6 (Version None)
Quarter: 2011Q4

REPORT INFORMATION
  Report Type: 
  Country: None (occurrence: None)
  Receive Date: 20111021
  Receipt Date: 20111012
  Transmission Date: 20120403
  Serious: Yes (Hospitalization)
  Sender: FDA-Public Use
  Company Number: US-GLAXOSMITHKLINE-B0752632A

PATIENT
  Age: 38 Year
  Sex: Female

DRUGS (17)
  1. LETAIRIS [Suspect]
     Indication: PULMONARY HYPERTENSION
     Route: 048
     Dates: start: 20110813
  2. PROTONIX [Concomitant]
  3. ASCORBIC ACID [Concomitant]
  4. COLACE [Concomitant]
  5. ASPIRIN [Concomitant]
  6. ZOFRAN [Concomitant]
  7. LISINOPRIL [Concomitant]
     Dosage: 40MG PER DAY
  8. ACETAMINOPHEN AND OXYCODONE HCL [Concomitant]
  9. SENNA [Concomitant]
  10. PLAVIX [Concomitant]
  11. REMERON [Concomitant]
  12. OXYGEN [Concomitant]
  13. NIFEDIPINE [Concomitant]
  14. MULTI-VITAMINS [Concomitant]
  15. REVATIO [Concomitant]
  16. EPOPROSTENOL SODIUM [Suspect]
  17. PERCOCET [Concomitant]

REACTIONS (4)
  - CHEST PAIN [None]
  - NAUSEA [None]
  - CLOSTRIDIUM DIFFICILE COLITIS [None]
  - DYSPNOEA [None]
